FAERS Safety Report 20631054 (Version 1)
Quarter: 2022Q1

REPORT INFORMATION
  Report Type: Spontaneous
  Country: HR (occurrence: HR)
  Receive Date: 20220324
  Receipt Date: 20220324
  Transmission Date: 20220424
  Serious: Yes (Other)
  Sender: FDA-Public Use
  Company Number: None

PATIENT
  Age: 42 Year
  Sex: Female

DRUGS (7)
  1. ZIPRASIDONE HYDROCHLORIDE [Suspect]
     Active Substance: ZIPRASIDONE HYDROCHLORIDE
     Dosage: 400 MG, QD
     Route: 048
     Dates: start: 20210928, end: 20210928
  2. LEVOMEPROMAZINE [Suspect]
     Active Substance: LEVOMEPROMAZINE
     Dosage: 25 MG, QD
     Route: 048
     Dates: start: 20210928, end: 20210928
  3. LEVOMEPROMAZINE MALEATE [Suspect]
     Active Substance: LEVOMEPROMAZINE MALEATE
     Dosage: 625 MG, QD
     Route: 048
     Dates: start: 20210928, end: 20210928
  4. ZOLPIDEM TARTRATE [Suspect]
     Active Substance: ZOLPIDEM TARTRATE
     Dosage: 30 DF, QD
     Route: 048
     Dates: start: 20210928, end: 20210928
  5. RISPERIDONE [Suspect]
     Active Substance: RISPERIDONE
     Dosage: 10 MG, QD
     Route: 048
     Dates: start: 20210928, end: 20210928
  6. NAPROXEN SODIUM [Suspect]
     Active Substance: NAPROXEN SODIUM
     Dosage: 3300 MG, QD
     Route: 048
     Dates: start: 20210928, end: 20210928
  7. SERTRALINE HYDROCHLORIDE [Suspect]
     Active Substance: SERTRALINE HYDROCHLORIDE
     Dosage: 250 MG, QD
     Route: 048
     Dates: start: 20210928, end: 20210928

REACTIONS (3)
  - Hypotension [Unknown]
  - Suicide attempt [Unknown]
  - Intentional overdose [Unknown]

NARRATIVE: CASE EVENT DATE: 20210928
